FAERS Safety Report 8904229 (Version 5)
Quarter: 2013Q4

REPORT INFORMATION
  Report Type: Spontaneous
  Country: US (occurrence: US)
  Receive Date: 20121112
  Receipt Date: 20131017
  Transmission Date: 20140711
  Serious: Yes (Hospitalization, Other)
  Sender: FDA-Public Use
  Company Number: US-009507513-1211USA004412

PATIENT
  Sex: Male
  Weight: 73.16 kg

DRUGS (7)
  1. FOSAMAX [Suspect]
     Indication: OSTEOPOROSIS
     Dosage: 10 MG, QD
     Route: 048
     Dates: start: 199905, end: 200201
  2. FOSAMAX [Suspect]
     Dosage: 70 MG, QW
     Route: 048
     Dates: start: 200604, end: 2009
  3. ALENDRONATE SODIUM [Suspect]
     Dosage: 70 MG, QW
     Route: 048
     Dates: start: 2009, end: 2011
  4. ALENDRONATE SODIUM [Suspect]
     Dosage: 10 MG, QW
     Route: 048
  5. MELOXICAM [Concomitant]
     Indication: OSTEOARTHRITIS
  6. MOBIC [Concomitant]
     Indication: OSTEOARTHRITIS
  7. VITAMIN D (UNSPECIFIED) [Concomitant]
     Indication: OSTEOPOROSIS
     Dosage: 50000 IU, QD

REACTIONS (28)
  - Femur fracture [Not Recovered/Not Resolved]
  - Intramedullary rod insertion [Unknown]
  - Intramedullary rod insertion [Recovered/Resolved]
  - Bone graft [Recovered/Resolved with Sequelae]
  - Medical device removal [Recovered/Resolved]
  - Fracture nonunion [Not Recovered/Not Resolved]
  - Limb asymmetry [Unknown]
  - Gait disturbance [Unknown]
  - Osteopenia [Unknown]
  - Arthroscopy [Unknown]
  - Cervical spinal stenosis [Recovered/Resolved]
  - Blood pressure increased [Unknown]
  - Fatigue [Unknown]
  - Inguinal hernia [Unknown]
  - Dyspnoea [Unknown]
  - Acute sinusitis [Unknown]
  - Androgen deficiency [Unknown]
  - Nasal septal operation [Unknown]
  - Haemorrhoid operation [Unknown]
  - Cataract operation [Unknown]
  - Hyperlipidaemia [Unknown]
  - Chest pain [Unknown]
  - Nocturia [Unknown]
  - Bursitis [Unknown]
  - Vascular calcification [Unknown]
  - Diverticulum intestinal [Unknown]
  - Neck pain [Unknown]
  - Back pain [Unknown]
